FAERS Safety Report 9758519 (Version 1)
Quarter: 2013Q4

REPORT INFORMATION
  Report Type: Spontaneous
  Country: US (occurrence: None)
  Receive Date: 20131216
  Receipt Date: 20131216
  Transmission Date: 20140711
  Serious: No
  Sender: FDA-Public Use
  Company Number: CABO-13002678

PATIENT
  Age: 65 Year
  Sex: Male
  Weight: 56 kg

DRUGS (5)
  1. COMETRIQ (CABOZANTINIB) CAPSULE [Suspect]
     Indication: THYROID CANCER
     Dosage: 100 MG, QD, ORAL
     Dates: start: 20130313
  2. FENTANYL [Concomitant]
  3. ONDANSETRON [Concomitant]
  4. HYDROCODONE/APAP [Suspect]
  5. DIPHENOXYLATE [Suspect]

REACTIONS (3)
  - Odynophagia [None]
  - Oropharyngeal pain [None]
  - Dysphagia [None]
